FAERS Safety Report 22160363 (Version 1)
Quarter: 2023Q1

REPORT INFORMATION
  Report Type: Spontaneous
  Country: US (occurrence: US)
  Receive Date: 20230331
  Receipt Date: 20230331
  Transmission Date: 20230417
  Serious: No
  Sender: FDA-Public Use
  Company Number: US-PADAGIS-2023PAD00386

PATIENT

DRUGS (2)
  1. AMMONIUM LACTATE [Suspect]
     Active Substance: AMMONIUM LACTATE
     Indication: Product used for unknown indication
     Dosage: UNK, (AT BEDTIME)
     Route: 061
     Dates: start: 20230314
  2. AMMONIUM LACTATE [Suspect]
     Active Substance: AMMONIUM LACTATE
     Dosage: UNK (PREVIOUSLY RECIEVED)
     Route: 061

REACTIONS (1)
  - Drug ineffective [Unknown]

NARRATIVE: CASE EVENT DATE: 20230314
